FAERS Safety Report 9055884 (Version 1)
Quarter: 2013Q1

REPORT INFORMATION
  Report Type: Spontaneous
  Country: US (occurrence: US)
  Receive Date: 20130206
  Receipt Date: 20130206
  Transmission Date: 20140127
  Serious: No
  Sender: FDA-Public Use
  Company Number: US-ALLERGAN-1202347US

PATIENT
  Age: 54 Year
  Sex: Female

DRUGS (3)
  1. RESTASIS? [Suspect]
     Indication: DRY EYE
     Dosage: 4 GTT, BID
     Route: 047
     Dates: start: 201110, end: 20120205
  2. REFRESH OPTIVE [Concomitant]
     Indication: DRY EYE
     Dosage: 2 GTT, PRN
     Route: 047
  3. OMEPRAZOLE [Concomitant]
     Indication: GASTROOESOPHAGEAL REFLUX DISEASE
     Dosage: UNK

REACTIONS (4)
  - Burning sensation [Recovering/Resolving]
  - Eye irritation [Recovering/Resolving]
  - Scleral hyperaemia [Recovering/Resolving]
  - Foreign body sensation in eyes [Recovering/Resolving]
